FAERS Safety Report 6686047-3 (Version None)
Quarter: 2010Q2

REPORT INFORMATION
  Report Type: 
  Country: None (occurrence: None)
  Receive Date: 20100419
  Receipt Date: 20100409
  Transmission Date: 20101027
  Serious: Yes (Hospitalization)
  Sender: FDA-Public Use
  Company Number: US-MYLANLABS-2010S1006339

PATIENT
  Age: 49 Year
  Sex: Female

DRUGS (1)
  1. FENTANYL [Suspect]
     Route: 062

REACTIONS (1)
  - HEPATOMEGALY [None]
